FAERS Safety Report 11996475 (Version 1)
Quarter: 2016Q1

REPORT INFORMATION
  Report Type: Spontaneous
  Country: US (occurrence: US)
  Receive Date: 20160203
  Receipt Date: 20160203
  Transmission Date: 20160526
  Serious: Yes (Other)
  Sender: FDA-Public Use
  Company Number: US-BIOGEN-2016BI00172297

PATIENT
  Age: 53 Year

DRUGS (1)
  1. TYSABRI [Suspect]
     Active Substance: NATALIZUMAB
     Indication: MULTIPLE SCLEROSIS
     Route: 042

REACTIONS (7)
  - Cerebrovascular accident [Unknown]
  - Cognitive disorder [Unknown]
  - Migraine [Unknown]
  - Fatigue [Unknown]
  - Neuralgia [Unknown]
  - Malaise [Unknown]
  - Muscle spasms [Unknown]
